FAERS Safety Report 8112978-3 (Version None)
Quarter: 2012Q1

REPORT INFORMATION
  Report Type: 
  Country: None (occurrence: None)
  Receive Date: 20120203
  Receipt Date: 20120123
  Transmission Date: 20120608
  Serious: Yes (Hospitalization)
  Sender: FDA-Public Use
  Company Number: FR-ELI_LILLY_AND_COMPANY-FR201201006377

PATIENT
  Age: 68 Year
  Sex: Female

DRUGS (3)
  1. FORTEO [Suspect]
     Indication: OSTEOPOROSIS
     Dosage: 20 UG, QD
     Route: 058
     Dates: start: 20101101
  2. POTASSIUM CHLORIDE [Concomitant]
     Dosage: UNK
     Dates: end: 20111202
  3. TEMGESIC [Concomitant]

REACTIONS (3)
  - BLOOD POTASSIUM DECREASED [None]
  - PAIN [None]
  - BACK PAIN [None]
